FAERS Safety Report 21977055 (Version 3)
Quarter: 2023Q1

REPORT INFORMATION
  Report Type: Report from Study
  Country: US (occurrence: US)
  Receive Date: 20230210
  Receipt Date: 20230223
  Transmission Date: 20230418
  Serious: No
  Sender: FDA-Public Use
  Company Number: US-002147023-NVSC2023US030895

PATIENT
  Sex: Female

DRUGS (1)
  1. ENTRESTO [Suspect]
     Active Substance: SACUBITRIL\VALSARTAN
     Indication: Product used for unknown indication
     Dosage: UNK, 24/26 MG
     Route: 048

REACTIONS (5)
  - Gastroenteritis viral [Unknown]
  - Flatulence [Unknown]
  - Hot flush [Unknown]
  - Constipation [Unknown]
  - Diarrhoea [Unknown]
